FAERS Safety Report 17393227 (Version 1)
Quarter: 2020Q1

REPORT INFORMATION
  Report Type: Spontaneous
  Country: US (occurrence: US)
  Receive Date: 20200207
  Receipt Date: 20200207
  Transmission Date: 20200409
  Serious: No
  Sender: FDA-Public Use
  Company Number: US-VALIDUS PHARMACEUTICALS LLC-US-2019VAL000308

PATIENT
  Sex: Male

DRUGS (2)
  1. HUMIRA [Suspect]
     Active Substance: ADALIMUMAB
     Indication: RHEUMATOID ARTHRITIS
     Dosage: UNK
     Route: 058
  2. LASIX [Suspect]
     Active Substance: FUROSEMIDE
     Indication: PROSTATIC DISORDER
     Dosage: UNK
     Route: 065

REACTIONS (7)
  - Pollakiuria [Not Recovered/Not Resolved]
  - Prostatic disorder [Unknown]
  - Fluid retention [Not Recovered/Not Resolved]
  - Joint swelling [Not Recovered/Not Resolved]
  - Peripheral swelling [Not Recovered/Not Resolved]
  - Hypoglycaemia [Recovering/Resolving]
  - Product use in unapproved indication [Unknown]
